FAERS Safety Report 7996166-7 (Version None)
Quarter: 2011Q4

REPORT INFORMATION
  Report Type: 
  Country: None (occurrence: None)
  Receive Date: 20111220
  Receipt Date: 20111214
  Transmission Date: 20120403
  Serious: Yes (Death)
  Sender: FDA-Public Use
  Company Number: PHHY2011CO108818

PATIENT

DRUGS (1)
  1. VOLTAREN [Suspect]
     Dosage: 75 MG, UNK

REACTIONS (1)
  - DEATH [None]
